FAERS Safety Report 10983759 (Version 1)
Quarter: 2015Q2

REPORT INFORMATION
  Report Type: Spontaneous
  Country: AT (occurrence: AT)
  Receive Date: 20150403
  Receipt Date: 20150403
  Transmission Date: 20150821
  Serious: Yes (Life-Threatening, Hospitalization, Other)
  Sender: FDA-Public Use
  Company Number: AT-ROXANE LABORATORIES, INC.-2015-RO-00550RO

PATIENT
  Age: 25 Year
  Sex: Female
  Weight: 40 kg

DRUGS (1)
  1. FUROSEMIDE. [Suspect]
     Active Substance: FUROSEMIDE
     Indication: PRODUCT USED FOR UNKNOWN INDICATION
     Route: 065

REACTIONS (17)
  - Ventricular fibrillation [Recovered/Resolved]
  - Hypokalaemia [Recovered/Resolved]
  - Pneumothorax traumatic [Unknown]
  - Thrombocytopenia [Unknown]
  - Sudden cardiac death [Recovered/Resolved]
  - Electrocardiogram QT prolonged [Recovered/Resolved]
  - Nephritis [Recovered/Resolved]
  - Anaemia [Unknown]
  - Renal failure [Unknown]
  - Generalised tonic-clonic seizure [Recovered/Resolved]
  - Pleural effusion [Recovered/Resolved]
  - Pneumonia [Unknown]
  - Hyponatraemia [Unknown]
  - Liver function test abnormal [Unknown]
  - Rhabdomyolysis [Unknown]
  - Cardiac failure [Unknown]
  - Blood creatine phosphokinase increased [Unknown]

NARRATIVE: CASE EVENT DATE: 200809
